FAERS Safety Report 21224131 (Version 13)
Quarter: 2024Q2

REPORT INFORMATION
  Report Type: Report from Study
  Country: US (occurrence: US)
  Receive Date: 20220817
  Receipt Date: 20240628
  Transmission Date: 20240716
  Serious: Yes (Other)
  Sender: FDA-Public Use
  Company Number: US-JAZZ-2022-US-026574

PATIENT
  Sex: Female

DRUGS (10)
  1. XYWAV [Suspect]
     Active Substance: CALCIUM OXYBATE\MAGNESIUM OXYBATE\POTASSIUM OXYBATE\SODIUM OXYBATE
     Indication: Narcolepsy
     Dosage: 3 GRAM, TID
  2. XYWAV [Suspect]
     Active Substance: CALCIUM OXYBATE\MAGNESIUM OXYBATE\POTASSIUM OXYBATE\SODIUM OXYBATE
     Indication: Cataplexy
     Dosage: UNK
  3. XYWAV [Suspect]
     Active Substance: CALCIUM OXYBATE\MAGNESIUM OXYBATE\POTASSIUM OXYBATE\SODIUM OXYBATE
     Indication: Somnolence
  4. ATIVAN [Concomitant]
     Active Substance: LORAZEPAM
     Indication: Product used for unknown indication
     Dosage: UNK
     Dates: start: 20001101
  5. IRON;VITAMIN B12 NOS;VITAMIN E NOS [Concomitant]
     Indication: Product used for unknown indication
     Dosage: UNK
     Dates: start: 20141010
  6. ADDERALL [Concomitant]
     Active Substance: AMPHETAMINE ASPARTATE\AMPHETAMINE SULFATE\DEXTROAMPHETAMINE SACCHARATE\DEXTROAMPHETAMINE SULFATE
     Indication: Product used for unknown indication
     Dosage: UNK
     Dates: start: 20160601
  7. DEXTROAMPHETAMINE [Concomitant]
     Active Substance: DEXTROAMPHETAMINE
     Indication: Product used for unknown indication
     Dosage: UNK
     Dates: start: 20221117
  8. COENZYME Q10 [Concomitant]
     Active Substance: DIETARY SUPPLEMENT\UBIDECARENONE
     Indication: Product used for unknown indication
     Dosage: UNK
     Dates: start: 20200429
  9. VITAMIN D3 [Concomitant]
     Active Substance: CHOLECALCIFEROL
     Indication: Product used for unknown indication
     Dosage: UNK (SOFTGEL)
     Dates: start: 20190429
  10. ASCORBIC ACID [Concomitant]
     Active Substance: ASCORBIC ACID
     Indication: Product used for unknown indication
     Dosage: UNK
     Dates: start: 20190429

REACTIONS (20)
  - Atrial fibrillation [Unknown]
  - Disability [Unknown]
  - Anxiety [Unknown]
  - Weight increased [Unknown]
  - Food craving [Unknown]
  - Feeling abnormal [Unknown]
  - Panic disorder [Unknown]
  - Attention deficit hyperactivity disorder [Unknown]
  - Condition aggravated [Unknown]
  - Drug hypersensitivity [Unknown]
  - Heart rate irregular [Unknown]
  - Malaise [Unknown]
  - Nausea [Unknown]
  - Unevaluable event [Unknown]
  - Abdominal discomfort [Unknown]
  - Skin disorder [Unknown]
  - Therapeutic product effect decreased [Unknown]
  - Drug intolerance [Unknown]
  - Drug ineffective [Unknown]
  - Off label use [Unknown]
